FAERS Safety Report 11440465 (Version 3)
Quarter: 2015Q4

REPORT INFORMATION
  Report Type: Spontaneous
  Country: AT (occurrence: AT)
  Receive Date: 20150901
  Receipt Date: 20151130
  Transmission Date: 20160304
  Serious: Yes (Life-Threatening, Hospitalization, Other)
  Sender: FDA-Public Use
  Company Number: PHHY2015AT103738

PATIENT
  Age: 57 Year
  Sex: Female
  Weight: 68 kg

DRUGS (3)
  1. GLADEM [Concomitant]
     Active Substance: SERTRALINE HYDROCHLORIDE
     Indication: DEPRESSION
     Dosage: 50 MG, QD
     Route: 048
  2. GILENYA [Suspect]
     Active Substance: FINGOLIMOD HYDROCHLORIDE
     Indication: MULTIPLE SCLEROSIS
     Dosage: 0.5 MG, QD
     Route: 048
     Dates: start: 20150730
  3. INKONTAN [Concomitant]
     Indication: BLADDER DYSFUNCTION
     Dosage: 30 MG, TID
     Route: 048
     Dates: start: 201502

REACTIONS (6)
  - Partial seizures [Recovered/Resolved]
  - Respiratory failure [Unknown]
  - Motor dysfunction [Unknown]
  - Loss of consciousness [Unknown]
  - Status epilepticus [Recovered/Resolved]
  - Demyelination [Unknown]

NARRATIVE: CASE EVENT DATE: 20150813
